FAERS Safety Report 8123528-X (Version None)
Quarter: 2012Q1

REPORT INFORMATION
  Report Type: 
  Country: None (occurrence: None)
  Receive Date: 20120208
  Receipt Date: 20120202
  Transmission Date: 20120608
  Serious: Yes (Other)
  Sender: FDA-Public Use
  Company Number: PHHY2011US23902

PATIENT
  Sex: Male

DRUGS (2)
  1. EXJADE [Suspect]
     Indication: SICKLE CELL ANAEMIA
     Dosage: 2000 MG, DAILY
     Route: 048
  2. EXJADE [Interacting]
     Dosage: 1000 MG, QD
     Route: 048

REACTIONS (4)
  - DRUG INTERACTION [None]
  - MALAISE [None]
  - PULMONARY HYPERTENSION [None]
  - MEDICATION ERROR [None]
